FAERS Safety Report 5165478-7 (Version None)
Quarter: 2006Q4

REPORT INFORMATION
  Report Type: 
  Country: None (occurrence: None)
  Receive Date: 20061206
  Receipt Date: 20061206
  Transmission Date: 20070319
  Serious: Yes (Death)
  Sender: FDA-Public Use
  Company Number: None

PATIENT
  Age: 4 Month
  Sex: Male
  Weight: 6.8 kg

DRUGS (1)
  1. PSEUDOEPHEDRINE HCL [Suspect]

REACTIONS (4)
  - BLOOD CULTURE POSITIVE [None]
  - DRUG LEVEL INCREASED [None]
  - STAPHYLOCOCCAL INFECTION [None]
  - SUDDEN INFANT DEATH SYNDROME [None]
